FAERS Safety Report 13159718 (Version 1)
Quarter: 2017Q1

REPORT INFORMATION
  Report Type: Spontaneous
  Country: US (occurrence: US)
  Receive Date: 20170127
  Receipt Date: 20170127
  Transmission Date: 20170428
  Serious: Yes (Life-Threatening, Other)
  Sender: FDA-Public Use
  Company Number: US-PFIZER INC-2017034045

PATIENT
  Age: 62 Year
  Sex: Female
  Weight: 77 kg

DRUGS (3)
  1. FLUCONAZOLE. [Interacting]
     Active Substance: FLUCONAZOLE
     Indication: KIDNEY INFECTION
     Dosage: 200 MG, DAILY
     Route: 048
  2. FLUCONAZOLE. [Interacting]
     Active Substance: FLUCONAZOLE
     Indication: URINARY TRACT INFECTION
  3. LIPITOR [Suspect]
     Active Substance: ATORVASTATIN CALCIUM
     Indication: PROPHYLAXIS
     Dosage: 40 MG, DAILY
     Route: 048

REACTIONS (3)
  - Drug interaction [Recovering/Resolving]
  - Acute kidney injury [Recovering/Resolving]
  - Rhabdomyolysis [Recovering/Resolving]

NARRATIVE: CASE EVENT DATE: 201701
